FAERS Safety Report 7215624-6 (Version None)
Quarter: 2011Q1

REPORT INFORMATION
  Report Type: 
  Country: None (occurrence: None)
  Receive Date: 20110107
  Receipt Date: 20110103
  Transmission Date: 20110831
  Serious: Yes (Death, Life-Threatening, Hospitalization)
  Sender: FDA-Public Use
  Company Number: US-ACTELION-A-NJ2010-42197

PATIENT

DRUGS (6)
  1. SILDENAFIL [Concomitant]
  2. VELETRI [Suspect]
     Indication: PULMONARY ARTERIAL HYPERTENSION
     Dosage: 9 NG/KG, PER MIN
     Route: 041
     Dates: start: 20101111, end: 20101101
  3. ASPIRIN [Concomitant]
  4. REMODULIN [Concomitant]
  5. VELETRI [Suspect]
     Dosage: 11.5 NG/KG, PER MIN
     Route: 041
     Dates: start: 20101101, end: 20101101
  6. FLOLAN [Concomitant]

REACTIONS (5)
  - DEATH [None]
  - DEHYDRATION [None]
  - CARDIO-RESPIRATORY ARREST [None]
  - VOMITING [None]
  - ENCEPHALOPATHY [None]
